FAERS Safety Report 6173581-8 (Version None)
Quarter: 2009Q2

REPORT INFORMATION
  Report Type: 
  Country: None (occurrence: None)
  Receive Date: 20090430
  Receipt Date: 20090423
  Transmission Date: 20091009
  Serious: Yes (Hospitalization)
  Sender: FDA-Public Use
  Company Number: CA-ABBOTT-08P-028-0474909-00

PATIENT
  Sex: Female

DRUGS (3)
  1. HUMIRA [Suspect]
     Indication: CROHN'S DISEASE
     Route: 058
     Dates: start: 20080527, end: 20090220
  2. PURINETHOL [Concomitant]
     Indication: DRUG USE FOR UNKNOWN INDICATION
  3. TYLENOL (CAPLET) [Concomitant]
     Indication: DRUG USE FOR UNKNOWN INDICATION
     Dosage: PRN

REACTIONS (3)
  - DIARRHOEA [None]
  - HEADACHE [None]
  - INTESTINAL OBSTRUCTION [None]
